FAERS Safety Report 10141844 (Version 1)
Quarter: 2014Q2

REPORT INFORMATION
  Report Type: Spontaneous
  Country: US (occurrence: US)
  Receive Date: 20140429
  Receipt Date: 20140429
  Transmission Date: 20141212
  Serious: No
  Sender: FDA-Public Use
  Company Number: US-ASTRAZENECA-2014SE23117

PATIENT
  Sex: Female
  Weight: 53.5 kg

DRUGS (1)
  1. PULMICORT FLEXHALER [Suspect]
     Indication: ASTHMA
     Dosage: 1 PUFF,TWO TIMES A DAY
     Route: 055
     Dates: start: 20140326

REACTIONS (5)
  - Cough [Unknown]
  - Throat irritation [Unknown]
  - Off label use [Unknown]
  - Intentional product misuse [Unknown]
  - Circumstance or information capable of leading to medication error [Unknown]
